FAERS Safety Report 5378132-3 (Version None)
Quarter: 2007Q3

REPORT INFORMATION
  Report Type: 
  Country: None (occurrence: None)
  Receive Date: 20070705
  Receipt Date: 20070626
  Transmission Date: 20080115
  Serious: Yes (Other)
  Sender: FDA-Public Use
  Company Number: PHFR2007GB02008

PATIENT
  Sex: Female

DRUGS (1)
  1. AREDIA [Suspect]
     Route: 065

REACTIONS (1)
  - CARPAL TUNNEL SYNDROME [None]
